FAERS Safety Report 20974458 (Version 1)
Quarter: 2022Q2

REPORT INFORMATION
  Report Type: Report from Study
  Country: IT (occurrence: IT)
  Receive Date: 20220617
  Receipt Date: 20220617
  Transmission Date: 20220721
  Serious: Yes (Death, Other)
  Sender: FDA-Public Use
  Company Number: None

PATIENT
  Age: 87 Year
  Sex: Female

DRUGS (10)
  1. APIXABAN [Suspect]
     Active Substance: APIXABAN
     Indication: Cerebrovascular accident prophylaxis
     Route: 048
     Dates: start: 20210608, end: 20220502
  2. CRESTOR 10 MG COMPRESSE RIVESTITE CON FILM [Concomitant]
     Indication: Product used for unknown indication
  3. RAMIPRIL [Concomitant]
     Active Substance: RAMIPRIL
     Indication: Product used for unknown indication
  4. ALLOPURINOL [Concomitant]
     Active Substance: ALLOPURINOL
     Indication: Product used for unknown indication
  5. CANRENOATE POTASSIUM [Concomitant]
     Active Substance: CANRENOATE POTASSIUM
     Indication: Product used for unknown indication
  6. FOLINA 5 MG CAPSULE MOLLI [Concomitant]
     Indication: Product used for unknown indication
  7. VENLAFAXINE HYDROCHLORIDE [Concomitant]
     Active Substance: VENLAFAXINE HYDROCHLORIDE
     Indication: Product used for unknown indication
  8. LANOXIN [Concomitant]
     Active Substance: DIGOXIN
     Indication: Product used for unknown indication
  9. LASIX [Concomitant]
     Active Substance: FUROSEMIDE
     Indication: Product used for unknown indication
  10. METHOTREXATE SODIUM [Concomitant]
     Active Substance: METHOTREXATE SODIUM
     Indication: Product used for unknown indication

REACTIONS (12)
  - Melaena [Fatal]
  - Sepsis [Fatal]
  - Dyspnoea [Fatal]
  - Hypovolaemic shock [Fatal]
  - Pallor [Fatal]
  - Asthenia [Fatal]
  - Hypotension [Fatal]
  - Dehydration [Fatal]
  - Acute kidney injury [Fatal]
  - Sopor [Fatal]
  - Abdominal pain [Fatal]
  - Haematemesis [Fatal]

NARRATIVE: CASE EVENT DATE: 20220501
